FAERS Safety Report 8716330 (Version 2)
Quarter: 2013Q4

REPORT INFORMATION
  Report Type: Report from Study
  Country: TR (occurrence: TR)
  Receive Date: 20120810
  Receipt Date: 20131105
  Transmission Date: 20140711
  Serious: Yes (Other)
  Sender: FDA-Public Use
  Company Number: TR-009507513-1208TUR002419

PATIENT
  Age: 67 Year
  Sex: Female

DRUGS (7)
  1. VICTRELIS [Suspect]
     Indication: CHRONIC HEPATITIS C
     Dosage: 1200 MG, QD
     Route: 048
     Dates: start: 20111205, end: 20120725
  2. PEG-INTRON [Suspect]
     Indication: CHRONIC HEPATITIS C
     Dosage: 100 MICROGRAM, QW
     Route: 058
     Dates: start: 20111205, end: 20120725
  3. REBETOL [Suspect]
     Indication: CHRONIC HEPATITIS C
     Dosage: 600 MG, QD
     Route: 048
     Dates: start: 20111205, end: 20120725
  4. ISOPTIN [Concomitant]
  5. TRIMETAZIDINE [Concomitant]
  6. DIGOXIN [Concomitant]
  7. HEPARIN [Concomitant]

REACTIONS (3)
  - Hepatic failure [Recovered/Resolved]
  - Hepatic encephalopathy [Recovered/Resolved]
  - Ascites [Recovered/Resolved]
